FAERS Safety Report 15108820 (Version 1)
Quarter: 2018Q3

REPORT INFORMATION
  Report Type: Report from Study
  Country: US (occurrence: US)
  Receive Date: 20180705
  Receipt Date: 20180705
  Transmission Date: 20181010
  Serious: Yes (Other)
  Sender: FDA-Public Use
  Company Number: US-MYLANLABS-2018M1046511

PATIENT

DRUGS (1)
  1. SODIUM NITROPRUSSIDE. [Suspect]
     Active Substance: SODIUM NITROPRUSSIDE
     Indication: MEAN ARTERIAL PRESSURE INCREASED
     Route: 041

REACTIONS (2)
  - Blood cyanide increased [Unknown]
  - Respiratory depression [Unknown]
